FAERS Safety Report 24581868 (Version 2)
Quarter: 2025Q1

REPORT INFORMATION
  Report Type: Report from Study
  Country: CL (occurrence: CL)
  Receive Date: 20241105
  Receipt Date: 20250206
  Transmission Date: 20250409
  Serious: Yes (Hospitalization, Other)
  Sender: SANDOZ
  Company Number: CL-SANDOZ-SDZ2024CL091750

PATIENT
  Sex: Female

DRUGS (3)
  1. HYRIMOZ [Suspect]
     Active Substance: ADALIMUMAB-ADAZ
     Dosage: 40 MG WEEKLY
     Route: 058
     Dates: start: 202405, end: 20241129
  2. HYRIMOZ [Suspect]
     Active Substance: ADALIMUMAB-ADAZ
     Indication: Crohn^s disease
     Dosage: 40 MG, 2 DOSES OF 40 MG EVERY 14 DAYS
     Route: 058
     Dates: start: 20230721, end: 202405
  3. INFLIXIMAB [Concomitant]
     Active Substance: INFLIXIMAB
     Indication: Product used for unknown indication
     Route: 065
     Dates: start: 20241224

REACTIONS (11)
  - Hepatic cirrhosis [Unknown]
  - Crohn^s disease [Unknown]
  - Hypoproteinaemia [Unknown]
  - Anaemia [Unknown]
  - Uveitis [Unknown]
  - Psoriasis [Not Recovered/Not Resolved]
  - Hepatitis [Not Recovered/Not Resolved]
  - Weight decreased [Unknown]
  - Generalised oedema [Unknown]
  - Drug ineffective [Unknown]
  - Treatment failure [Unknown]

NARRATIVE: CASE EVENT DATE: 20240101
